FAERS Safety Report 9116241 (Version 1)
Quarter: 2013Q1

REPORT INFORMATION
  Report Type: Spontaneous
  Country: DE (occurrence: DE)
  Receive Date: 20130225
  Receipt Date: 20130225
  Transmission Date: 20140127
  Serious: Yes (Hospitalization, Other)
  Sender: FDA-Public Use
  Company Number: DE-ELI_LILLY_AND_COMPANY-DE201301007044

PATIENT
  Age: 49 Year
  Sex: Female

DRUGS (4)
  1. YENTREVE [Suspect]
     Indication: INCONTINENCE
     Dosage: 40 MG, BID
     Route: 048
     Dates: start: 20120914, end: 20121123
  2. QUETIAPINE [Concomitant]
     Dosage: 50 MG, UNKNOWN
     Dates: start: 20120620
  3. CIPRALEX [Concomitant]
     Dosage: 10 DF, UNKNOWN
     Dates: end: 20120928
  4. ASTHMA-SPRAY [Concomitant]
     Dosage: UNK, UNKNOWN

REACTIONS (4)
  - Serotonin syndrome [Recovered/Resolved]
  - Pruritus [Recovered/Resolved]
  - Gamma-glutamyltransferase abnormal [Recovered/Resolved]
  - Blood glucose increased [Recovered/Resolved]
